FAERS Safety Report 10775786 (Version 3)
Quarter: 2015Q3

REPORT INFORMATION
  Report Type: Report from Study
  Country: JP (occurrence: None)
  Receive Date: 20150205
  Receipt Date: 20150731
  Transmission Date: 20151125
  Serious: Yes (Hospitalization, Other)
  Sender: FDA-Public Use
  Company Number: 2015-000057

PATIENT
  Age: 82 Year
  Sex: Female

DRUGS (18)
  1. ACTONEL [Suspect]
     Active Substance: RISEDRONATE SODIUM
     Indication: OSTEOPOROSIS
     Route: 048
     Dates: start: 20140925, end: 20150504
  2. LIPITOR [Concomitant]
     Active Substance: ATORVASTATIN CALCIUM
  3. ADOAIR (FLUTICASONE PROPIONATE, SALMETEROL XINAFOATE) [Concomitant]
  4. CINAL (ASCORBIC ACID, CALCIUM PANTOTHENATE) [Concomitant]
  5. BUP-4 (PROPIVERINE HYDROCHLORIDE) [Concomitant]
  6. ZETIA [Concomitant]
     Active Substance: EZETIMIBE
  7. MUCODYNE (CARBOCISTEINE) [Concomitant]
     Active Substance: CARBOCYSTEINE
  8. KARY UNI (PIRENOXINE) [Concomitant]
  9. MAGNESIUM OXIDE. [Concomitant]
     Active Substance: MAGNESIUM OXIDE
  10. GASTER D (FAMOTIDINE) [Concomitant]
  11. HYALEIN (HYALURONATE SODIUM) [Concomitant]
  12. HIRUDOID (HEPARINOID) [Concomitant]
  13. ANTEBATE (BETAMETHASONE BUTYRATE PROPIONATE) [Concomitant]
  14. GASMOTIN (MOSAPRIDE CITRATE) [Concomitant]
     Active Substance: MOSAPRIDE CITRATE
  15. AMLODIPINE [Concomitant]
     Active Substance: AMLODIPINE BESYLATE
  16. GLACTIV (SITAGLIPTIN PHOSPHATE MONOHYDRATE) [Concomitant]
  17. CEROCRAL (IFENPRODIL TARTRATE) [Concomitant]
  18. CALCIUM LACTATE [Concomitant]
     Active Substance: CALCIUM LACTATE

REACTIONS (5)
  - Sudden hearing loss [None]
  - Nausea [None]
  - Vomiting [None]
  - Abdominal discomfort [None]
  - Gastric ulcer haemorrhage [None]

NARRATIVE: CASE EVENT DATE: 20150111
